FAERS Safety Report 5506919-2 (Version None)
Quarter: 2007Q4

REPORT INFORMATION
  Report Type: 
  Country: None (occurrence: None)
  Receive Date: 20071105
  Receipt Date: 20071026
  Transmission Date: 20080405
  Serious: Yes (Hospitalization)
  Sender: FDA-Public Use
  Company Number: US-ABBOTT-07P-163-0422023-00

PATIENT
  Sex: Male
  Weight: 65.83 kg

DRUGS (5)
  1. HUMIRA [Suspect]
     Indication: CROHN'S DISEASE
     Route: 058
     Dates: start: 20071016
  2. HUMIRA [Suspect]
     Route: 058
     Dates: start: 20071002, end: 20071002
  3. BUDESONIDE [Concomitant]
     Indication: CROHN'S DISEASE
     Route: 048
  4. PANTOPRAZOLE SODIUM [Concomitant]
     Indication: BARRETT'S OESOPHAGUS
     Route: 048
  5. FINASTERIDE [Concomitant]
     Indication: ALOPECIA
     Route: 048

REACTIONS (5)
  - CHEST PAIN [None]
  - DIZZINESS [None]
  - ERYTHEMA [None]
  - HYPERTENSION [None]
  - URTICARIA [None]
